FAERS Safety Report 13425552 (Version 1)
Quarter: 2017Q2

REPORT INFORMATION
  Report Type: Spontaneous
  Country: US (occurrence: US)
  Receive Date: 20170410
  Receipt Date: 20170410
  Transmission Date: 20170830
  Serious: Yes (Other)
  Sender: FDA-Public Use
  Company Number: None

PATIENT
  Age: 90 Year
  Sex: Female

DRUGS (1)
  1. REVLIMID [Suspect]
     Active Substance: LENALIDOMIDE
     Indication: PLASMA CELL MYELOMA
     Dosage: DATES OF USE - 2 CYCLES??15MG  EVERY OTHER DAY X21D ORAL
     Route: 048

REACTIONS (2)
  - Thrombocytopenia [None]
  - Rash [None]

NARRATIVE: CASE EVENT DATE: 20150506
